FAERS Safety Report 6642250-X (Version None)
Quarter: 2010Q1

REPORT INFORMATION
  Report Type: 
  Country: None (occurrence: None)
  Receive Date: 20100319
  Receipt Date: 20100308
  Transmission Date: 20100710
  Serious: Yes (Other)
  Sender: FDA-Public Use
  Company Number: JP-JNJFOC-20100300556

PATIENT
  Sex: Male
  Weight: 51 kg

DRUGS (11)
  1. REMICADE [Suspect]
     Indication: CROHN'S DISEASE
     Route: 042
  2. REMICADE [Suspect]
     Route: 042
  3. REMICADE [Suspect]
     Route: 042
  4. PENTASA [Concomitant]
     Indication: CROHN'S DISEASE
     Route: 048
  5. ELENTAL [Concomitant]
     Indication: CROHN'S DISEASE
     Dosage: DOSE: ^1PAC^
     Route: 048
  6. PREDONINE [Concomitant]
     Indication: PREMEDICATION
     Dosage: ROUTE OF ADMINISTRATION: ^DR^
     Route: 042
  7. GASTROM GRANULES [Concomitant]
     Indication: CROHN'S DISEASE
     Route: 048
  8. BIOFERMIN [Concomitant]
     Indication: CROHN'S DISEASE
     Route: 048
  9. ALBUMIN TANNATE [Concomitant]
     Indication: CROHN'S DISEASE
     Route: 048
  10. GARASONE [Concomitant]
     Indication: CROHN'S DISEASE
  11. ALL OTHER THERAPEUTIC DRUG [Concomitant]
     Indication: CROHN'S DISEASE

REACTIONS (7)
  - DYSPNOEA [None]
  - INFUSION RELATED REACTION [None]
  - INFUSION SITE ERYTHEMA [None]
  - NAUSEA [None]
  - OROPHARYNGEAL DISCOMFORT [None]
  - TYPE IV HYPERSENSITIVITY REACTION [None]
  - VOMITING [None]
